FAERS Safety Report 8033316-0 (Version None)
Quarter: 2012Q1

REPORT INFORMATION
  Report Type: 
  Country: None (occurrence: None)
  Receive Date: 20120110
  Receipt Date: 20120106
  Transmission Date: 20120608
  Serious: Yes (Life-Threatening, Hospitalization, Disabling)
  Sender: FDA-Public Use
  Company Number: AU-SANOFI-AVENTIS-2011SA022177

PATIENT
  Age: 67 Year
  Sex: Female
  Weight: 76.4 kg

DRUGS (25)
  1. FLUTICASONE FUROATE [Concomitant]
     Indication: ASTHMA
     Dosage: DOSE: 2 PUFFS
     Route: 055
  2. FOLIC ACID [Concomitant]
     Route: 048
  3. THERAPEUTIC RADIOPHARMACEUTICALS [Suspect]
     Route: 065
     Dates: end: 20110810
  4. PREDNISOLONE [Concomitant]
     Indication: RHEUMATOID ARTHRITIS
     Route: 048
  5. PANTOPRAZOLE [Concomitant]
     Route: 048
  6. ACETAMINOPHEN [Concomitant]
     Indication: PAIN
     Route: 048
  7. ASPIRIN [Concomitant]
     Indication: ATRIAL FIBRILLATION
  8. METHOTREXATE [Concomitant]
     Indication: RHEUMATOID ARTHRITIS
     Route: 048
  9. METOPROLOL SUCCINATE [Concomitant]
     Indication: ATRIAL FIBRILLATION
     Route: 048
     Dates: start: 20110406
  10. OXALIPLATIN [Suspect]
     Indication: RECTAL CANCER
     Dosage: ACTUAL DOSE GIVEN: 104 MG
     Route: 042
     Dates: start: 20110221, end: 20110321
  11. VERAPAMIL [Concomitant]
     Indication: HYPERTENSION
     Route: 048
  12. DICLOFENAC [Concomitant]
     Indication: RHEUMATOID ARTHRITIS
     Route: 048
  13. FERROUS SULFATE TAB [Concomitant]
     Route: 048
  14. METOCLOPRAMIDE [Concomitant]
     Indication: NAUSEA
     Route: 048
     Dates: end: 20111102
  15. MAGNESIUM [Concomitant]
     Route: 048
     Dates: start: 20110819, end: 20111102
  16. SALMETEROL [Concomitant]
     Indication: ASTHMA
     Dosage: 25 MCG, DOSE: 2 PUFFS
     Route: 055
  17. OLMESARTAN MEDOXOMIL [Concomitant]
     Indication: HYPERTENSION
     Route: 048
  18. ENOXAPARIN [Concomitant]
     Indication: ATRIAL FIBRILLATION
     Route: 058
     Dates: start: 20110626, end: 20111102
  19. POTASSIUM CHLORIDE [Concomitant]
     Route: 048
     Dates: start: 20110819, end: 20111102
  20. OXALIPLATIN [Suspect]
     Route: 042
     Dates: end: 20110810
  21. CAPECITABINE [Suspect]
     Indication: RECTAL CANCER
     Dosage: ACTUAL DOSE GIVEN: 1000 MG, 825 MG/M2 , BID D1-33
     Route: 048
     Dates: start: 20110221, end: 20110401
  22. CAPECITABINE [Suspect]
     Route: 048
     Dates: end: 20110810
  23. THERAPEUTIC RADIOPHARMACEUTICALS [Suspect]
     Indication: RECTAL CANCER
     Dosage: 28 FRACTIONS OF RADIOTHRAPY AT A DOSE OF 1.8 GY PER FRACTION
     Route: 065
     Dates: start: 20110401
  24. THERAPEUTIC RADIOPHARMACEUTICALS [Suspect]
     Route: 065
     Dates: start: 20110221
  25. COLECALCIFEROL [Concomitant]
     Indication: VITAMIN D
     Route: 048

REACTIONS (9)
  - HYPOKALAEMIA [None]
  - HYPOALBUMINAEMIA [None]
  - PYREXIA [None]
  - ATRIAL FIBRILLATION [None]
  - DECREASED APPETITE [None]
  - FAILURE TO ANASTOMOSE [None]
  - FEMALE GENITAL TRACT FISTULA [None]
  - DEHYDRATION [None]
  - URINARY TRACT INFECTION [None]
